FAERS Safety Report 15583686 (Version 1)
Quarter: 2018Q4

REPORT INFORMATION
  Report Type: Spontaneous
  Country: US (occurrence: US)
  Receive Date: 20181031
  Receipt Date: 20181031
  Transmission Date: 20190205
  Serious: No
  Sender: FDA-Public Use
  Company Number: None

PATIENT
  Age: 70 Year
  Sex: Female

DRUGS (1)
  1. EPCLUSA [Suspect]
     Active Substance: SOFOSBUVIR\VELPATASVIR
     Route: 048
     Dates: start: 20181009, end: 20181030

REACTIONS (3)
  - Nausea [None]
  - Fatigue [None]
  - Upper respiratory tract infection [None]

NARRATIVE: CASE EVENT DATE: 20181030
